FAERS Safety Report 4417364-5 (Version None)
Quarter: 2004Q3

REPORT INFORMATION
  Report Type: 
  Country: None (occurrence: None)
  Receive Date: 20040802
  Receipt Date: 20040721
  Transmission Date: 20050211
  Serious: Yes (Other)
  Sender: FDA-Public Use
  Company Number: 2004224977US

PATIENT
  Sex: Female

DRUGS (6)
  1. PROVERA [Suspect]
  2. PREMPRO [Suspect]
  3. ACTIVELLE [Suspect]
  4. PREMARIN [Suspect]
  5. MEDROXYPROGESTERONE [Suspect]
  6. ESTROGEN() [Suspect]

REACTIONS (1)
  - BREAST CANCER FEMALE [None]
